FAERS Safety Report 8849826 (Version 2)
Quarter: 2012Q4

REPORT INFORMATION
  Report Type: 
  Country: CA (occurrence: CA)
  Receive Date: 20121019
  Receipt Date: 20121220
  Transmission Date: 20130627
  Serious: Yes (Other)
  Sender: FDA-Public Use
  Company Number: CA-AMGEN-CANSP2012032603

PATIENT
  Age: 58 Year
  Sex: Female
  Weight: 54 kg

DRUGS (2)
  1. PROLIA [Suspect]
     Indication: OSTEOPOROSIS
     Dosage: 60 mg, q6mo
     Route: 058
     Dates: start: 201112
  2. PROLIA [Suspect]
     Dosage: UNK
     Dates: start: 20120516

REACTIONS (4)
  - Osteonecrosis of jaw [Recovering/Resolving]
  - Hypoaesthesia [Unknown]
  - Localised infection [Unknown]
  - Gingival inflammation [Unknown]
